FAERS Safety Report 6790274-4 (Version None)
Quarter: 2010Q2

REPORT INFORMATION
  Report Type: 
  Country: None (occurrence: None)
  Receive Date: 20100624
  Receipt Date: 20100311
  Transmission Date: 20101027
  Serious: No
  Sender: FDA-Public Use
  Company Number: US-BAYER-201011815NA

PATIENT
  Age: 10 Month
  Sex: Male

DRUGS (1)
  1. KOGENATE FS [Suspect]
     Indication: FACTOR VIII DEFICIENCY

REACTIONS (2)
  - JOINT INJURY [None]
  - JOINT SWELLING [None]
